FAERS Safety Report 6460369-3 (Version None)
Quarter: 2009Q4

REPORT INFORMATION
  Report Type: 
  Country: None (occurrence: None)
  Receive Date: 20091123
  Receipt Date: 20091106
  Transmission Date: 20100525
  Serious: Yes (Hospitalization)
  Sender: FDA-Public Use
  Company Number: 2009SA002120

PATIENT
  Sex: Male

DRUGS (4)
  1. MULTAQ [Suspect]
     Dosage: 400 MILLIGRAM(S);ORAL
     Route: 048
  2. TIKOSYN [Suspect]
  3. CON MEDS [Concomitant]
  4. PREV MEDS [Concomitant]

REACTIONS (1)
  - FEELING ABNORMAL [None]
